FAERS Safety Report 25103337 (Version 1)
Quarter: 2025Q1

REPORT INFORMATION
  Report Type: Spontaneous
  Country: US (occurrence: US)
  Receive Date: 20250321
  Receipt Date: 20250321
  Transmission Date: 20250409
  Serious: No
  Sender: DR REDDYS
  Company Number: None

PATIENT
  Age: 26 Year
  Sex: Female

DRUGS (2)
  1. DOXYCYCLINE [Suspect]
     Active Substance: DOXYCYCLINE
     Indication: Prophylaxis
     Dates: start: 20240903, end: 20240905
  2. PREDNISONE [Concomitant]
     Active Substance: PREDNISONE
     Indication: Bell^s palsy
     Dosage: 20 MG, FOUR TABLETS ONCE DAILY
     Dates: start: 20240903, end: 20240909

REACTIONS (2)
  - Nausea [Unknown]
  - Vomiting [Unknown]

NARRATIVE: CASE EVENT DATE: 20240905
